FAERS Safety Report 16957373 (Version 1)
Quarter: 2019Q4

REPORT INFORMATION
  Report Type: Spontaneous
  Country: FR (occurrence: FR)
  Receive Date: 20191024
  Receipt Date: 20191024
  Transmission Date: 20200122
  Serious: Yes (Congenital Anomaly)
  Sender: FDA-Public Use
  Company Number: FR-GLAXOSMITHKLINE-FR2019192045

PATIENT
  Sex: Male

DRUGS (1)
  1. LAMICTAL [Suspect]
     Active Substance: LAMOTRIGINE
     Indication: PRODUCT USED FOR UNKNOWN INDICATION
     Dosage: 200 MG, UNK
     Route: 064
     Dates: end: 20070824

REACTIONS (3)
  - Hypotonia [Not Recovered/Not Resolved]
  - Foetal exposure during pregnancy [Unknown]
  - Dyspraxia [Not Recovered/Not Resolved]

NARRATIVE: CASE EVENT DATE: 2007
